FAERS Safety Report 10402257 (Version 3)
Quarter: 2017Q2

REPORT INFORMATION
  Report Type: Spontaneous
  Country: US (occurrence: US)
  Receive Date: 20140822
  Receipt Date: 20170425
  Transmission Date: 20170829
  Serious: No
  Sender: FDA-Public Use
  Company Number: US-PFIZER INC-2014233427

PATIENT
  Sex: Female

DRUGS (1)
  1. LYRICA [Suspect]
     Active Substance: PREGABALIN
     Dosage: UNK

REACTIONS (4)
  - Aphonia [Unknown]
  - Impaired driving ability [Unknown]
  - Loss of personal independence in daily activities [Unknown]
  - Withdrawal syndrome [Unknown]
